FAERS Safety Report 20000168 (Version 1)
Quarter: 2021Q4

REPORT INFORMATION
  Report Type: Spontaneous
  Country: JP (occurrence: JP)
  Receive Date: 20211026
  Receipt Date: 20211026
  Transmission Date: 20220303
  Serious: Yes (Other)
  Sender: FDA-Public Use
  Company Number: JP-GILEAD-2021-0553665

PATIENT
  Age: 90 Year
  Sex: Female
  Weight: 34.3 kg

DRUGS (4)
  1. VEKLURY [Suspect]
     Active Substance: REMDESIVIR
     Indication: COVID-19
     Dosage: 150 MG, QD
     Route: 041
     Dates: start: 20210401, end: 20210401
  2. VEKLURY [Suspect]
     Active Substance: REMDESIVIR
     Dosage: 75 MG, QD
     Route: 041
     Dates: start: 20210402, end: 20210403
  3. DECADRON [Concomitant]
     Active Substance: DEXAMETHASONE
     Indication: COVID-19
     Dosage: 4 MG
     Route: 048
     Dates: start: 20210401
  4. DECADRON [Concomitant]
     Active Substance: DEXAMETHASONE
     Dosage: 1 MG, QD
     Route: 048
     Dates: end: 20210403

REACTIONS (2)
  - Bradycardia [Recovered/Resolved]
  - Renal impairment [Recovered/Resolved]

NARRATIVE: CASE EVENT DATE: 20210401
